FAERS Safety Report 18741451 (Version 1)
Quarter: 2021Q1

REPORT INFORMATION
  Report Type: Spontaneous
  Country: US (occurrence: US)
  Receive Date: 20210114
  Receipt Date: 20210114
  Transmission Date: 20210419
  Serious: No
  Sender: FDA-Public Use
  Company Number: US-ABBVIE-20K-163-3412252-00

PATIENT
  Age: 66 Year
  Sex: Male
  Weight: 52.21 kg

DRUGS (7)
  1. MIDODRINE [Concomitant]
     Active Substance: MIDODRINE
     Indication: HYPOTENSION
  2. VITAMIN D [Concomitant]
     Active Substance: VITAMIN D NOS
     Indication: VITAMIN SUPPLEMENTATION
  3. MYRBETRIQ [Concomitant]
     Active Substance: MIRABEGRON
     Indication: URINARY INCONTINENCE
  4. MELATONIN [Concomitant]
     Active Substance: MELATONIN
     Indication: SLEEP DISORDER
  5. XADAGO [Concomitant]
     Active Substance: SAFINAMIDE MESYLATE
     Indication: PRODUCT USED FOR UNKNOWN INDICATION
  6. DUOPA [Suspect]
     Active Substance: CARBIDOPA\LEVODOPA
     Indication: PARKINSON^S DISEASE
     Route: 050
     Dates: start: 201602
  7. MULTIVITAMIN [Concomitant]
     Active Substance: VITAMINS
     Indication: VITAMIN SUPPLEMENTATION

REACTIONS (8)
  - Impaired self-care [Recovering/Resolving]
  - Gait disturbance [Recovering/Resolving]
  - Taste disorder [Not Recovered/Not Resolved]
  - Weight decreased [Not Recovered/Not Resolved]
  - Fall [Recovering/Resolving]
  - Confusional state [Not Recovered/Not Resolved]
  - Dyskinesia [Recovering/Resolving]
  - Device dislocation [Recovered/Resolved]

NARRATIVE: CASE EVENT DATE: 201602
